FAERS Safety Report 10194046 (Version 1)
Quarter: 2014Q2

REPORT INFORMATION
  Report Type: Spontaneous
  Country: US (occurrence: US)
  Receive Date: 20140524
  Receipt Date: 20140524
  Transmission Date: 20141212
  Serious: No
  Sender: FDA-Public Use
  Company Number: US-SANOFI-AVENTIS-2013SA065023

PATIENT
  Age: 75 Year
  Sex: Female

DRUGS (22)
  1. LANTUS [Suspect]
     Indication: HYPERCHLORHYDRIA
     Dosage: FREQUENCY: 1 IN 2 DOSE:43 UNIT(S)
     Route: 051
  2. HUMIRA [Concomitant]
     Indication: CROHN^S DISEASE
     Dates: start: 20130218
  3. AZATHIOPRINE [Concomitant]
  4. LANSOPRAZOLE [Concomitant]
  5. HYDROCODONE/PARACETAMOL [Concomitant]
     Indication: BACK PAIN
     Dosage: 5/325 MG 2 DAILY
  6. LORAZEPAM [Concomitant]
     Indication: ANXIETY
     Dosage: 1 MG,2 IN 1 D
  7. WARFARIN [Concomitant]
     Indication: HEART VALVE REPLACEMENT
     Dosage: FREQUENCY:(4 MG,3 IN 1 WK)
  8. CRESTOR [Concomitant]
     Indication: BLOOD CHOLESTEROL INCREASED
     Dosage: FREQUENCY:20 MG (20 MG,L IN 1 D)
  9. MAGNESIUM OXIDE [Concomitant]
     Dosage: FREQUENCY:1000 MG (1000 MG,1 IN 1 D)
  10. METOPROLOL [Concomitant]
     Indication: BLOOD PRESSURE
     Dosage: DOSE: (25 MG,1 IN 1 D)
  11. GEMFIBROZIL [Concomitant]
     Indication: BLOOD CHOLESTEROL
     Dosage: DOSE:1200 MG (600 MG,2 IN 1 D)
  12. DICYCLOMINE [Concomitant]
     Indication: CROHN^S DISEASE
     Dosage: DOSE: 20 MG (10 MG,2 IN 1 D)
  13. FUROSEMIDE [Concomitant]
     Indication: PERIPHERAL SWELLING
     Dosage: DOSE:20 MG (20 MG,1 IN 1 D)
  14. CENTRUM SILVER [Concomitant]
  15. VITAMIN B12 [Concomitant]
     Dosage: DOSE:500 MG (500 MG,1 IN 1 D)
  16. ZYRTEC [Concomitant]
     Indication: HYPERSENSITIVITY
     Dosage: DOSE:(10 MG,1 IN 1 D)
  17. ALPHAGAN [Concomitant]
     Indication: GLAUCOMA
     Dosage: DOSE:1 DROP EACH EYE BID (1 DROP,2 IN 1 D)
  18. LATANOPROST [Concomitant]
     Dosage: DOSE: GTT .005% EACH EYE DAILY (1 DROP,L IN 1 D)
  19. CINNAMOMUM VERUM [Concomitant]
     Indication: BLOOD GLUCOSE
     Dosage: DOSE:1000 MG (1000 MG,L IN 1 D)
  20. ONGLYZA [Concomitant]
     Indication: BLOOD GLUCOSE
     Dosage: DOSE:50 MG (50 MG,L IN 1 D)
  21. CALCIUM CARBONATE [Concomitant]
     Dosage: DOSE:25 MG (25 MG,1 IN 1 D)
  22. VITAMIN D [Concomitant]
     Dosage: DOSE:2000 IU (2000 IU,1 IN 1 D)

REACTIONS (1)
  - Hypoaesthesia [Unknown]
